FAERS Safety Report 23167713 (Version 2)
Quarter: 2025Q3

REPORT INFORMATION
  Report Type: Spontaneous
  Country: US (occurrence: US)
  Receive Date: 20231109
  Receipt Date: 20250707
  Transmission Date: 20251021
  Serious: Yes (Hospitalization)
  Sender: SANOFI AVENTIS
  Company Number: US-SA-SAC20231108001466

PATIENT
  Age: 71 Year
  Sex: Male
  Weight: 75.74 kg

DRUGS (3)
  1. REZUROCK [Suspect]
     Active Substance: BELUMOSUDIL
     Indication: Acute graft versus host disease
     Dosage: 200 MG, BID
     Route: 048
     Dates: start: 20220518
  2. HYDROCORTISONE [Concomitant]
     Active Substance: HYDROCORTISONE
     Dosage: 30 MG, QD
  3. NIKTIMVO [Concomitant]
     Active Substance: AXATILIMAB-CSFR
     Dosage: UNK UNK, QOW
     Dates: start: 202503

REACTIONS (9)
  - Hospitalisation [Unknown]
  - Pulmonary mass [Unknown]
  - Constipation [Unknown]
  - Pain in extremity [Unknown]
  - Dyspnoea exertional [Unknown]
  - Arthralgia [Unknown]
  - Asthenia [Unknown]
  - Product use in unapproved indication [Unknown]
  - Inappropriate schedule of product administration [Unknown]

NARRATIVE: CASE EVENT DATE: 20220518
